FAERS Safety Report 5647409-6 (Version None)
Quarter: 2008Q1

REPORT INFORMATION
  Report Type: 
  Country: None (occurrence: None)
  Receive Date: 20080228
  Receipt Date: 20080220
  Transmission Date: 20080703
  Serious: Yes (Hospitalization)
  Sender: FDA-Public Use
  Company Number: CHPA2008US03232

PATIENT
  Age: 60 Year
  Sex: Female

DRUGS (1)
  1. TRANSDERM SCOP [Suspect]
     Indication: MOTION SICKNESS
     Dosage: 1.5 MG Q72H, TRANSDERMAL
     Route: 062
     Dates: start: 20080125, end: 20080128

REACTIONS (2)
  - ELECTROCARDIOGRAM CHANGE [None]
  - MYDRIASIS [None]
